FAERS Safety Report 10220176 (Version 1)
Quarter: 2014Q2

REPORT INFORMATION
  Report Type: Report from Study
  Country: BR (occurrence: BR)
  Receive Date: 20140605
  Receipt Date: 20140605
  Transmission Date: 20141212
  Serious: Yes (Other)
  Sender: FDA-Public Use
  Company Number: PHHY2014BR069004

PATIENT
  Sex: Female
  Weight: 56 kg

DRUGS (3)
  1. DIOVAN TRIPLE [Suspect]
     Indication: HYPERTENSION
     Dosage: 2 DF (160/5/12.5MG), QD
  2. OMEPRAZOLE [Concomitant]
     Indication: GASTRIC DISORDER
     Dosage: 20 MG, UNK
  3. VENLAXIN [Concomitant]
     Indication: DEPRESSION
     Dosage: UNK DF (37/5MG), UNK

REACTIONS (11)
  - Diabetes mellitus [Recovered/Resolved]
  - Syncope [Recovered/Resolved]
  - Nervousness [Recovered/Resolved]
  - Gastric disorder [Recovered/Resolved]
  - Injury [Recovered/Resolved]
  - Headache [Recovered/Resolved]
  - Vomiting [Recovered/Resolved]
  - Diarrhoea [Recovered/Resolved]
  - Asthenia [Recovered/Resolved]
  - Tremor [Recovered/Resolved]
  - Blood pressure abnormal [Recovered/Resolved]
